FAERS Safety Report 8298050-0 (Version None)
Quarter: 2012Q2

REPORT INFORMATION
  Report Type: 
  Country: None (occurrence: None)
  Receive Date: 20120419
  Receipt Date: 20120414
  Transmission Date: 20120825
  Serious: Yes (Hospitalization, Other)
  Sender: FDA-Public Use
  Company Number: US-ROCHE-1019523

PATIENT
  Sex: Female
  Weight: 64.014 kg

DRUGS (5)
  1. WELLBUTRIN [Concomitant]
     Indication: EX-TOBACCO USER
  2. COPEGUS [Suspect]
     Indication: HEPATITIS C
     Dates: start: 20110518, end: 20111117
  3. WELLBUTRIN [Concomitant]
     Indication: DEPRESSION
  4. PEGINTERFERON ALFA-2B [Suspect]
     Indication: HEPATITIS C
     Dates: start: 20110518, end: 20111117
  5. ONDANSETRON [Concomitant]

REACTIONS (7)
  - ANAEMIA [None]
  - ALOPECIA [None]
  - PNEUMONIA [None]
  - WEIGHT DECREASED [None]
  - DEPRESSION [None]
  - NAUSEA [None]
  - WHITE BLOOD CELL COUNT DECREASED [None]
